FAERS Safety Report 9384762 (Version 1)
Quarter: 2013Q3

REPORT INFORMATION
  Report Type: Spontaneous
  Country: GB (occurrence: None)
  Receive Date: 20130701
  Receipt Date: 20130701
  Transmission Date: 20140515
  Serious: Yes (Death)
  Sender: FDA-Public Use
  Company Number: ABR_00988_2013

PATIENT
  Age: 67 Year
  Sex: Female

DRUGS (6)
  1. ERYTHROMYCIN (ERYTHROMYCIN) [Suspect]
     Indication: NOSOCOMIAL INFECTION
     Dosage: DF ORAL
     Route: 048
     Dates: start: 20090901, end: 20090906
  2. CLARITHROMYCIN (CLARITHROMYCIN) [Suspect]
     Indication: NOSOCOMIAL INFECTION
     Dosage: DF ORAL
     Route: 048
     Dates: start: 20090901, end: 20090906
  3. DEXAMETHASONE (DEXAMETHASONE) [Suspect]
     Indication: NOSOCOMIAL INFECTION
     Dosage: DF ORAL
     Route: 048
     Dates: start: 20090901, end: 20090906
  4. OXYCODONE (OXYCODONE) [Suspect]
     Indication: NOSOCOMIAL INFECTION
     Dosage: DF ORAL
     Dates: start: 20090901, end: 20090906
  5. SERTRALINE (SERTRALINE) (SERTRALINE) [Suspect]
     Indication: NOSOCOMIAL INFECTION
     Dosage: DF ORAL?
     Route: 048
     Dates: start: 20090901, end: 20090906
  6. AUGMENTIN [Suspect]
     Dosage: DF ORAL?
     Route: 048
     Dates: start: 20090901, end: 20090906

REACTIONS (2)
  - Respiratory disorder [None]
  - Dyspnoea [None]
